FAERS Safety Report 7811903-X (Version None)
Quarter: 2011Q4

REPORT INFORMATION
  Report Type: 
  Country: None (occurrence: None)
  Receive Date: 20111013
  Receipt Date: 20110930
  Transmission Date: 20120403
  Serious: Yes (Hospitalization)
  Sender: FDA-Public Use
  Company Number: PHHO2011JP16744

PATIENT
  Sex: Male
  Weight: 63 kg

DRUGS (14)
  1. PIMOBENDAN [Concomitant]
     Indication: CARDIAC FAILURE CHRONIC
     Dosage: 1.25 MG, UNK
     Route: 048
     Dates: start: 20100521
  2. CARVEDILOL [Concomitant]
     Indication: CARDIAC FAILURE CHRONIC
     Dosage: 5 MG, UNK
     Route: 048
     Dates: start: 20110715
  3. ALISKIREN [Suspect]
     Indication: CARDIAC FAILURE
     Dosage: 150 MG, UNK
     Route: 048
     Dates: start: 20101218
  4. ENALAPRIL MALEATE [Suspect]
     Indication: CARDIAC FAILURE CHRONIC
     Dosage: 10 MG, UNK
     Route: 048
     Dates: start: 20101009
  5. ENALAPRIL MALEATE [Suspect]
     Dosage: 20 MG, UNK
     Route: 048
     Dates: start: 20101029
  6. WARFARIN SODIUM [Concomitant]
     Indication: THROMBOSIS PROPHYLAXIS
     Dosage: 1 MG, UNK
     Route: 048
     Dates: start: 20100521, end: 20110922
  7. ALISKIREN [Suspect]
     Dosage: UNK
     Route: 048
     Dates: start: 20101119
  8. LASIX [Concomitant]
     Indication: CARDIAC FAILURE CHRONIC
     Dosage: 80 MG, UNK
     Route: 048
     Dates: start: 20100521
  9. ALLOPURINOL AND PREPARATIONS [Concomitant]
     Indication: HYPERURICAEMIA
     Dosage: 200 MG, UNK
     Route: 048
     Dates: start: 20100521
  10. LANSOPRAZOLE [Concomitant]
     Indication: GASTRITIS PROPHYLAXIS
     Dosage: 15 MG, UNK
     Route: 048
     Dates: start: 20100521
  11. ENALAPRIL MALEATE [Suspect]
     Indication: CARDIAC FAILURE
     Dosage: 5 MG, UNK
  12. ENALAPRIL MALEATE [Suspect]
     Dosage: 5 MG, UNK
     Route: 048
     Dates: start: 20110716
  13. ENALAPRIL MALEATE [Suspect]
     Dosage: 10 MG, UNK
     Route: 048
     Dates: start: 20101119
  14. LANIRAPID [Concomitant]
     Indication: CARDIAC FAILURE CHRONIC
     Dosage: 0.5 MG, UNK
     Route: 048
     Dates: start: 20110716

REACTIONS (8)
  - C-REACTIVE PROTEIN INCREASED [None]
  - ABDOMINAL PAIN [None]
  - DIARRHOEA [None]
  - VOMITING [None]
  - INGUINAL HERNIA [None]
  - WOUND HAEMORRHAGE [None]
  - CONDITION AGGRAVATED [None]
  - MUSCULAR WEAKNESS [None]
